FAERS Safety Report 23236525 (Version 2)
Quarter: 2023Q4

REPORT INFORMATION
  Report Type: Report from Study
  Country: US (occurrence: US)
  Receive Date: 20231128
  Receipt Date: 20231205
  Transmission Date: 20240110
  Serious: No
  Sender: FDA-Public Use
  Company Number: US-002147023-NVSC2023US248167

PATIENT
  Sex: Male

DRUGS (1)
  1. COSENTYX [Suspect]
     Active Substance: SECUKINUMAB
     Indication: Hidradenitis
     Dosage: UNK
     Route: 065

REACTIONS (9)
  - Hidradenitis [Unknown]
  - Fistula [Unknown]
  - Abscess [Unknown]
  - Nodule [Unknown]
  - Dermatitis acneiform [Unknown]
  - Hypertrophic scar [Unknown]
  - Skin lesion [Unknown]
  - Pain [Unknown]
  - Therapeutic product effect incomplete [Unknown]
